FAERS Safety Report 7177768-7 (Version None)
Quarter: 2010Q4

REPORT INFORMATION
  Report Type: 
  Country: None (occurrence: None)
  Receive Date: 20101208
  Receipt Date: 20101026
  Transmission Date: 20110411
  Serious: Yes (Other)
  Sender: FDA-Public Use
  Company Number: 766405

PATIENT

DRUGS (2)
  1. MAGNESIUM SULFATE [Suspect]
     Indication: PRODUCT USED FOR UNKNOWN INDICATION
     Dosage: INTRAVENOUS DRIP
     Route: 041
     Dates: start: 20101023, end: 20101023
  2. SODIUM CHLORIDE INJ USP 0.9% (SODIUM CHLORIDE) [Concomitant]

REACTIONS (2)
  - EXTRASYSTOLES [None]
  - INCORRECT DOSE ADMINISTERED [None]
